FAERS Safety Report 4985299-5 (Version None)
Quarter: 2006Q2

REPORT INFORMATION
  Report Type: 
  Country: None (occurrence: None)
  Receive Date: 20060427
  Receipt Date: 20051020
  Transmission Date: 20061013
  Serious: Yes (Other)
  Sender: FDA-Public Use
  Company Number: US-MERCK-0602USA00325

PATIENT
  Age: 32 Year
  Sex: Female
  Weight: 102 kg

DRUGS (1)
  1. VIOXX [Suspect]
     Indication: BACK PAIN
     Route: 048
     Dates: start: 20020503, end: 20031201

REACTIONS (13)
  - CARDIAC DISORDER [None]
  - CARDIOVASCULAR DISORDER [None]
  - CONVERSION DISORDER [None]
  - HEADACHE [None]
  - LIVER DISORDER [None]
  - MULTI-ORGAN DISORDER [None]
  - MYOCARDIAL INFARCTION [None]
  - PSYCHOSOMATIC DISEASE [None]
  - PULMONARY EMBOLISM [None]
  - RENAL DISORDER [None]
  - TINEA CAPITIS [None]
  - TRANSIENT ISCHAEMIC ATTACK [None]
  - UPPER RESPIRATORY TRACT INFECTION [None]
